FAERS Safety Report 11215482 (Version 1)
Quarter: 2015Q2

REPORT INFORMATION
  Report Type: Spontaneous
  Country: BR (occurrence: BR)
  Receive Date: 20150624
  Receipt Date: 20150624
  Transmission Date: 20150821
  Serious: Yes (Hospitalization, Other)
  Sender: FDA-Public Use
  Company Number: BR-ASTRAZENECA-2015SE60189

PATIENT
  Age: 60 Year
  Sex: Male
  Weight: 84 kg

DRUGS (6)
  1. PANTOPRAZOLE [Concomitant]
     Active Substance: PANTOPRAZOLE SODIUM
     Indication: CORONARY ARTERY OCCLUSION
     Dates: start: 2006
  2. SOMALGIN [Concomitant]
     Active Substance: ASPIRIN\DIHYDROXYALUMINUM AMINOACETATE ANHYDROUS\MAGNESIUM CARBONATE
     Indication: CORONARY ARTERY OCCLUSION
     Dates: start: 2006
  3. CLOPIDOGREL [Concomitant]
     Active Substance: CLOPIDOGREL BISULFATE
     Indication: CORONARY ARTERY OCCLUSION
     Route: 048
     Dates: start: 2006
  4. BRASART HCT (HYDROCHLOROTHYAZIDE) [Suspect]
     Active Substance: HYDROCHLOROTHIAZIDE\VALSARTAN
     Indication: HYPERTENSION
     Dosage: 160/12,5 MG
     Route: 048
     Dates: start: 2014
  5. CRESTOR [Suspect]
     Active Substance: ROSUVASTATIN CALCIUM
     Indication: CORONARY ARTERY OCCLUSION
     Route: 048
     Dates: start: 2006
  6. ATACAND [Suspect]
     Active Substance: CANDESARTAN CILEXETIL
     Indication: HYPERTENSION
     Route: 048
     Dates: start: 2006, end: 2014

REACTIONS (4)
  - Hypertension [Recovered/Resolved]
  - Type 2 diabetes mellitus [Recovered/Resolved]
  - Coronary artery occlusion [Recovered/Resolved]
  - Drug ineffective [Unknown]

NARRATIVE: CASE EVENT DATE: 2009
